FAERS Safety Report 21085411 (Version 2)
Quarter: 2023Q2

REPORT INFORMATION
  Report Type: Report from Study
  Country: US (occurrence: US)
  Receive Date: 20220714
  Receipt Date: 20230505
  Transmission Date: 20230722
  Serious: No
  Sender: FDA-Public Use
  Company Number: US-ACADIA PHARMACEUTICALS INC.-ACA-2022-PIM-002150

PATIENT
  Age: 68 Year
  Sex: Male

DRUGS (16)
  1. NUPLAZID [Suspect]
     Active Substance: PIMAVANSERIN TARTRATE
     Indication: Parkinson^s disease
     Dosage: 34 MILLIGRAM, QD
     Route: 048
     Dates: start: 202206
  2. HUMALOG [Concomitant]
     Active Substance: INSULIN LISPRO
  3. ELIQUIS [Concomitant]
     Active Substance: APIXABAN
  4. OMEPRAZOLE [Concomitant]
     Active Substance: OMEPRAZOLE
  5. AZELASTINE [Concomitant]
     Active Substance: AZELASTINE
  6. FUROSEMIDE [Concomitant]
     Active Substance: FUROSEMIDE
  7. KETOCONAZOLE [Concomitant]
     Active Substance: KETOCONAZOLE
  8. TRESIBA [Concomitant]
     Active Substance: INSULIN DEGLUDEC
  9. DONEPEZIL [Concomitant]
     Active Substance: DONEPEZIL
  10. HYDROCODONE [Concomitant]
     Active Substance: HYDROCODONE
  11. METOLAZONE [Concomitant]
     Active Substance: METOLAZONE
  12. METOPROLOL [Concomitant]
     Active Substance: METOPROLOL
  13. GLUCAGON [Concomitant]
     Active Substance: GLUCAGON
  14. POTASSIUM CHLORIDE [Concomitant]
     Active Substance: POTASSIUM CHLORIDE
  15. LISINOPRIL [Concomitant]
     Active Substance: LISINOPRIL
  16. SPIRIVA [Concomitant]
     Active Substance: TIOTROPIUM BROMIDE MONOHYDRATE

REACTIONS (3)
  - Cardiac disorder [Unknown]
  - Blood glucose increased [Unknown]
  - Swelling [Unknown]

NARRATIVE: CASE EVENT DATE: 20220601
